FAERS Safety Report 8355539-3 (Version None)
Quarter: 2012Q2

REPORT INFORMATION
  Report Type: 
  Country: None (occurrence: None)
  Receive Date: 20120513
  Receipt Date: 20120503
  Transmission Date: 20120825
  Serious: Yes (Death, Hospitalization)
  Sender: FDA-Public Use
  Company Number: ES-ELI_LILLY_AND_COMPANY-ES201205001496

PATIENT
  Sex: Female

DRUGS (1)
  1. FORTEO [Suspect]
     Dosage: UNK
     Route: 065
     Dates: end: 20120401

REACTIONS (4)
  - EMBOLISM [None]
  - DEATH [None]
  - PNEUMONIA [None]
  - CEREBROVASCULAR ACCIDENT [None]
